FAERS Safety Report 16898901 (Version 1)
Quarter: 2019Q4

REPORT INFORMATION
  Report Type: Spontaneous
  Country: US (occurrence: US)
  Receive Date: 20191008
  Receipt Date: 20191008
  Transmission Date: 20200122
  Serious: Yes (Hospitalization)
  Sender: FDA-Public Use
  Company Number: None

PATIENT
  Sex: Female

DRUGS (13)
  1. AMLODIPINE [Concomitant]
     Active Substance: AMLODIPINE BESYLATE
  2. MESALAMINE. [Concomitant]
     Active Substance: MESALAMINE
  3. PROTEINEX [Concomitant]
  4. SIMVASTATIN. [Concomitant]
     Active Substance: SIMVASTATIN
  5. MULTIVIT [Concomitant]
     Active Substance: VITAMINS
  6. HUMIRA [Suspect]
     Active Substance: ADALIMUMAB
     Indication: COLITIS ULCERATIVE
     Dosage: ?          OTHER FREQUENCY:EVERY OTHER WEEK;?
     Route: 058
     Dates: start: 20190108
  7. PLAVIX [Concomitant]
     Active Substance: CLOPIDOGREL BISULFATE
  8. SPIRONOLACT [Concomitant]
     Active Substance: SPIRONOLACTONE
  9. TPN ELECTOL [Concomitant]
  10. BUDESONIDE. [Concomitant]
     Active Substance: BUDESONIDE
  11. INDAPAMID [Concomitant]
     Active Substance: INDAPAMIDE
  12. MELATONIN [Concomitant]
     Active Substance: MELATONIN
  13. TYLENOL [Concomitant]
     Active Substance: ACETAMINOPHEN

REACTIONS (1)
  - Sepsis [None]
